FAERS Safety Report 6685813-8 (Version None)
Quarter: 2010Q2

REPORT INFORMATION
  Report Type: 
  Country: None (occurrence: None)
  Receive Date: 20100419
  Receipt Date: 20100408
  Transmission Date: 20101027
  Serious: Yes (Hospitalization)
  Sender: FDA-Public Use
  Company Number: JP-JNJFOC-20100402651

PATIENT
  Age: 70 Year
  Sex: Female

DRUGS (2)
  1. DUROTEP MT PATCH [Suspect]
     Indication: CANCER PAIN
     Route: 062
  2. DUROTEP MT PATCH [Suspect]
     Route: 062

REACTIONS (2)
  - INCORRECT DOSE ADMINISTERED [None]
  - MYOCLONUS [None]
